FAERS Safety Report 6992505-4 (Version None)
Quarter: 2010Q3

REPORT INFORMATION
  Report Type: 
  Country: None (occurrence: None)
  Receive Date: 20100917
  Receipt Date: 20100903
  Transmission Date: 20110219
  Serious: Yes (Hospitalization, Disabling, Other)
  Sender: FDA-Public Use
  Company Number: BR-BAYER-201017515LA

PATIENT
  Age: 53 Year
  Sex: Female
  Weight: 55 kg

DRUGS (9)
  1. NEXAVAR [Suspect]
     Indication: HEPATIC NEOPLASM MALIGNANT
     Dosage: 2 TABLETS / 2 X DAY
     Route: 048
     Dates: start: 20100726, end: 20100806
  2. TRAMAL RETARD [Concomitant]
     Indication: TUMOUR PAIN
     Route: 048
     Dates: start: 20091201
  3. LYRICA [Concomitant]
     Indication: TUMOUR PAIN
     Route: 048
     Dates: start: 20100601
  4. PLASIL [Concomitant]
     Indication: NAUSEA
     Route: 048
     Dates: start: 20100201
  5. PURAN T4 [Concomitant]
     Indication: HORMONE REPLACEMENT THERAPY
     Dosage: 1 TABLET / DAY
     Route: 048
     Dates: start: 20030101
  6. TOTELLE [Concomitant]
     Indication: HORMONE REPLACEMENT THERAPY
     Dosage: 1 TABLET / DAY
     Route: 048
     Dates: start: 20030101
  7. ALPRAZOLAM [Concomitant]
     Indication: DEPRESSION
     Dosage: 1 TABLET / DAY
     Route: 048
     Dates: start: 20050101
  8. CITALOPRAM HYDROBROMIDE [Concomitant]
     Indication: DEPRESSION
     Dosage: 1 TABLET / DAY
     Route: 048
     Dates: start: 20050101
  9. UNKNOWN DRUG [Concomitant]
     Indication: FIBROMYALGIA
     Dosage: 1 TABLET / ORAL
     Route: 048
     Dates: start: 20040101

REACTIONS (15)
  - APTYALISM [None]
  - ASTHENIA [None]
  - BACK PAIN [None]
  - CHEST PAIN [None]
  - DEHYDRATION [None]
  - DISORIENTATION [None]
  - DIZZINESS [None]
  - DRY MOUTH [None]
  - GLOSSODYNIA [None]
  - HYPERHIDROSIS [None]
  - PAIN IN EXTREMITY [None]
  - PNEUMONIA [None]
  - PULMONARY OEDEMA [None]
  - PYREXIA [None]
  - SOMNOLENCE [None]
